FAERS Safety Report 16755299 (Version 1)
Quarter: 2019Q3

REPORT INFORMATION
  Report Type: Spontaneous
  Country: US (occurrence: US)
  Receive Date: 20190829
  Receipt Date: 20190829
  Transmission Date: 20191005
  Serious: No
  Sender: FDA-Public Use
  Company Number: US-GILEAD-2019-0425635

PATIENT
  Sex: Female

DRUGS (4)
  1. MAG-OX [Concomitant]
     Active Substance: MAGNESIUM OXIDE
  2. SPIRONOLACTONE. [Concomitant]
     Active Substance: SPIRONOLACTONE
  3. EPCLUSA [Suspect]
     Active Substance: SOFOSBUVIR\VELPATASVIR
     Indication: CHRONIC HEPATITIS C
     Dosage: 1 DOSAGE FORM, QD
     Route: 048
  4. FUROSEMIDE. [Concomitant]
     Active Substance: FUROSEMIDE

REACTIONS (5)
  - Muscle spasms [Recovered/Resolved with Sequelae]
  - Product dose omission [Recovered/Resolved]
  - Memory impairment [Not Recovered/Not Resolved]
  - Mood altered [Recovered/Resolved with Sequelae]
  - Irritability [Recovered/Resolved with Sequelae]
